FAERS Safety Report 8422339-5 (Version None)
Quarter: 2012Q2

REPORT INFORMATION
  Report Type: 
  Country: None (occurrence: None)
  Receive Date: 20120604
  Receipt Date: 20120521
  Transmission Date: 20120825
  Serious: Yes (Other)
  Sender: FDA-Public Use
  Company Number: DSA_57546_2012

PATIENT
  Age: 34 Year
  Sex: Male

DRUGS (5)
  1. BUPROPION HCL [Suspect]
     Indication: PRODUCT USED FOR UNKNOWN INDICATION
     Dosage: (100 MG QD), (150 MG 1X/12 HOURS)
  2. ZALEPLON [Concomitant]
  3. BUSPIRONE HCL [Concomitant]
  4. QUETIAPINE [Concomitant]
  5. ACAMPROSATE [Concomitant]

REACTIONS (7)
  - PATIENT RESTRAINT [None]
  - WITHDRAWAL SYNDROME [None]
  - DELIRIUM [None]
  - AGITATION [None]
  - HALLUCINATIONS, MIXED [None]
  - AGGRESSION [None]
  - ANXIETY [None]
